FAERS Safety Report 19434375 (Version 1)
Quarter: 2021Q2

REPORT INFORMATION
  Report Type: Spontaneous
  Country: PL (occurrence: PL)
  Receive Date: 20210618
  Receipt Date: 20210618
  Transmission Date: 20210717
  Serious: Yes (Hospitalization, Other)
  Sender: FDA-Public Use
  Company Number: PL-TEVA-2021-PL-1922574

PATIENT
  Age: 49 Year
  Sex: Male

DRUGS (11)
  1. ROSUVASTATIN. [Suspect]
     Active Substance: ROSUVASTATIN
     Indication: PRODUCT USED FOR UNKNOWN INDICATION
     Dosage: 1 DFTHERAPY START DATE :THERAPY END DATE :ASKU:UNIT DOSE:30MILLIGRAM
  2. ENTRESTO [Suspect]
     Active Substance: SACUBITRIL\VALSARTAN
     Dosage: 49/51 MG TWO TIMES A DAY, EVERY 12 HOURSTHERAPY END DATE :ASKU
     Dates: start: 20190910
  3. EPLERENONE. [Suspect]
     Active Substance: EPLERENONE
     Dosage: 0.5 DF (25 MG(1 TABLET/HALF):THERAPY START DATE :THERAPY END DATE :ASKU:UNIT DOSE:25MILLIGRAM
  4. CARVEDILOL. [Suspect]
     Active Substance: CARVEDILOL
     Dosage: 50 MILLIGRAM DAILY; BID:THERAPY START DATE :THERAPY END DATE:ASKU
  5. BISOPROLOL SALT NOT SPECIFIED [Suspect]
     Active Substance: BISOPROLOL
     Dosage: 5 MILLIGRAM DAILY; QDTHERAPY START DATE:THERAPY END DATE :ASKU
  6. ACETYLSALICYLIC ACID [Suspect]
     Active Substance: ASPIRIN
     Dosage: 75 MGTHERAPY START DATE:THERAPY START DATE:ASKU
  7. EZETIMIBE. [Suspect]
     Active Substance: EZETIMIBE
     Dosage: AT NIGHT:THERAPY START DATE:THERAPY END DATE :ASKU
  8. RAMIPRIL. [Suspect]
     Active Substance: RAMIPRIL
     Dosage: 5 MILLIGRAM DAILY; IN THE EVENING:THERAPY START DATE:THERAPY END DATE :ASKU
  9. FENOFIBRATE. [Suspect]
     Active Substance: FENOFIBRATE
     Dosage: 25 MGTHERAPY START DATE:THERAPY END DATE :ASKU
  10. OMEGA?3 TRIGLYCERIDES [Suspect]
     Active Substance: OMEGA-3 FATTY ACIDS
     Dosage: 2 DOSAGE FORMS DAILY; UNK (DOSE TEXT: 2 TABLET)THERAPY START DATE :THERAPY END DATE:ASKU
  11. TRIMETAZIDINE HYDROCHLORIDE [Suspect]
     Active Substance: TRIMETAZIDINE DIHYDROCHLORIDE
     Dosage: 4 DOSAGE FORMS DAILY; BIDTHERAPY START DATE :THERAPY END DATE :ASKU

REACTIONS (5)
  - Fatigue [Unknown]
  - Electrocardiogram abnormal [Unknown]
  - General physical health deterioration [Unknown]
  - Dyspnoea [Unknown]
  - Rales [Unknown]
